FAERS Safety Report 4557749-X (Version None)
Quarter: 2005Q1

REPORT INFORMATION
  Report Type: 
  Country: None (occurrence: None)
  Receive Date: 20050103
  Receipt Date: 20040809
  Transmission Date: 20050727
  Serious: Yes (Other)
  Sender: FDA-Public Use
  Company Number: 2004UW16847

PATIENT
  Sex: Female

DRUGS (2)
  1. CRESTOR [Suspect]
  2. CHOLESTEROL MEDICATION [Concomitant]

REACTIONS (1)
  - MYALGIA [None]
